FAERS Safety Report 25141181 (Version 1)
Quarter: 2025Q2

REPORT INFORMATION
  Report Type: Spontaneous
  Country: US (occurrence: None)
  Receive Date: 20250328
  Receipt Date: 20250328
  Transmission Date: 20250717
  Serious: Yes (Life-Threatening, Disabling)
  Sender: FDA-CTU
  Company Number: None

PATIENT
  Age: 63 Year
  Sex: Male
  Weight: 94.5 kg

DRUGS (4)
  1. VTAMA [Suspect]
     Active Substance: TAPINAROF
     Indication: Psoriasis
     Route: 061
     Dates: start: 20250321, end: 20250323
  2. SIMVASTATIN [Concomitant]
     Active Substance: SIMVASTATIN
  3. SERTRALINE [Concomitant]
     Active Substance: SERTRALINE HYDROCHLORIDE
  4. AMLOPDOPINE [Concomitant]

REACTIONS (6)
  - Eye swelling [None]
  - Swelling face [None]
  - Skin discolouration [None]
  - Peripheral swelling [None]
  - Erythema [None]
  - Skin exfoliation [None]

NARRATIVE: CASE EVENT DATE: 20250322
